FAERS Safety Report 12780443 (Version 1)
Quarter: 2016Q3

REPORT INFORMATION
  Report Type: Spontaneous
  Country: NZ (occurrence: NZ)
  Receive Date: 20160926
  Receipt Date: 20160926
  Transmission Date: 20161109
  Serious: Yes (Death)
  Sender: FDA-Public Use
  Company Number: NZ-PFIZER INC-2016438627

PATIENT
  Age: 56 Year
  Sex: Male

DRUGS (7)
  1. SUNITINIB MALATE. [Suspect]
     Active Substance: SUNITINIB MALATE
     Dosage: 50 MG, DAILY, CONTINIOUS
     Dates: start: 201202
  2. ZOLEDRONIC ACID [Concomitant]
     Active Substance: ZOLEDRONIC ACID
     Indication: HYPERCALCAEMIA
     Dosage: 4 MG, EVERY 3 WEEKS
  3. SUNITINIB MALATE. [Suspect]
     Active Substance: SUNITINIB MALATE
     Indication: RENAL CELL CARCINOMA
     Dosage: 50 MG/DAY (4/2 SCHEDULE)
     Dates: start: 20111019
  4. SUNITINIB MALATE. [Suspect]
     Active Substance: SUNITINIB MALATE
     Dosage: 2/1 SCHEDULE
     Dates: start: 20111223
  5. SUNITINIB MALATE. [Suspect]
     Active Substance: SUNITINIB MALATE
     Dosage: 62.5 MG, DAILY, CONTINUOUS
     Dates: start: 20120622
  6. SUNITINIB MALATE. [Suspect]
     Active Substance: SUNITINIB MALATE
     Dosage: 75 MG, ONCE DAILY
     Dates: start: 20120921
  7. CLEXANE [Concomitant]
     Active Substance: ENOXAPARIN SODIUM
     Indication: VENA CAVA THROMBOSIS
     Dosage: 100 MG, 1X/DAY

REACTIONS (4)
  - Lymphoedema [Fatal]
  - Ulcer [Fatal]
  - Renal cell carcinoma [Fatal]
  - Disease progression [Fatal]
